FAERS Safety Report 4401788-6 (Version None)
Quarter: 2004Q3

REPORT INFORMATION
  Report Type: 
  Country: None (occurrence: None)
  Receive Date: 20040719
  Receipt Date: 20040713
  Transmission Date: 20050211
  Serious: Yes (Other)
  Sender: FDA-Public Use
  Company Number: GB-MERCK-0407GBR00133

PATIENT
  Age: 64 Year
  Sex: Male
  Weight: 85 kg

DRUGS (6)
  1. ACETAMINOPHEN AND CODEINE PHOSPHATE [Concomitant]
     Route: 065
     Dates: start: 20011205
  2. DIAZEPAM [Concomitant]
     Route: 065
     Dates: start: 20010926
  3. ZETIA [Suspect]
     Indication: HYPERCHOLESTEROLAEMIA
     Route: 048
     Dates: start: 20040622, end: 20040701
  4. OMEPRAZOLE [Concomitant]
     Route: 065
     Dates: start: 20010926
  5. ROSUVASTATIN CALCIUM [Concomitant]
     Route: 065
     Dates: end: 20040622
  6. SERTRALINE HYDROCHLORIDE [Concomitant]
     Route: 065
     Dates: start: 20011010

REACTIONS (3)
  - ABDOMINAL PAIN [None]
  - DIARRHOEA [None]
  - INTERNATIONAL NORMALISED RATIO INCREASED [None]
